FAERS Safety Report 18468121 (Version 1)
Quarter: 2020Q4

REPORT INFORMATION
  Report Type: Spontaneous
  Country: US (occurrence: US)
  Receive Date: 20201104
  Receipt Date: 20201104
  Transmission Date: 20210114
  Serious: Yes (Life-Threatening, Hospitalization)
  Sender: FDA-Public Use
  Company Number: None

PATIENT
  Age: 67 Year
  Sex: Female
  Weight: 72.1 kg

DRUGS (1)
  1. DECITABINE/CEDAZURIDINE [Suspect]
     Active Substance: CEDAZURIDINE\DECITABINE
     Indication: MYELODYSPLASTIC SYNDROME
     Route: 048
     Dates: start: 20201012, end: 20201016

REACTIONS (5)
  - Speech disorder [None]
  - Tongue discolouration [None]
  - Angioedema [None]
  - Swollen tongue [None]
  - Increased upper airway secretion [None]

NARRATIVE: CASE EVENT DATE: 20201103
